FAERS Safety Report 5405560-X (Version None)
Quarter: 2007Q3

REPORT INFORMATION
  Report Type: 
  Country: None (occurrence: None)
  Receive Date: 20070803
  Receipt Date: 20070723
  Transmission Date: 20080115
  Serious: Yes (Other)
  Sender: FDA-Public Use
  Company Number: US-PFIZER INC-2007062004

PATIENT
  Sex: Female
  Weight: 104.3 kg

DRUGS (3)
  1. DILANTIN [Suspect]
     Indication: CONVULSION
  2. ADVAIR DISKUS 100/50 [Concomitant]
  3. TRAVATAN [Concomitant]

REACTIONS (4)
  - DRUG LEVEL DECREASED [None]
  - HEADACHE [None]
  - HYPOAESTHESIA [None]
  - HYPOAESTHESIA ORAL [None]
